FAERS Safety Report 17771065 (Version 2)
Quarter: 2021Q1

REPORT INFORMATION
  Report Type: Spontaneous
  Country: SE (occurrence: SE)
  Receive Date: 20200512
  Receipt Date: 20210322
  Transmission Date: 20210419
  Serious: Yes (Hospitalization, Other)
  Sender: FDA-Public Use
  Company Number: NVSC2020SE128421

PATIENT
  Sex: Male

DRUGS (2)
  1. DUOTRAV [Suspect]
     Active Substance: TIMOLOL MALEATE\TRAVOPROST
     Indication: PRODUCT USED FOR UNKNOWN INDICATION
     Dosage: UNK (IN MORNING)
     Route: 065
  2. SIMBRINZA [Suspect]
     Active Substance: BRIMONIDINE TARTRATE\BRINZOLAMIDE
     Indication: PRODUCT USED FOR UNKNOWN INDICATION
     Dosage: UNK (IN MORNING AND EVENING)
     Route: 065
     Dates: start: 20161108

REACTIONS (4)
  - Pruritus [Unknown]
  - Cerebrovascular accident [Unknown]
  - Vision blurred [Unknown]
  - COVID-19 [Unknown]

NARRATIVE: CASE EVENT DATE: 2016
